FAERS Safety Report 9281514 (Version 2)
Quarter: 2013Q3

REPORT INFORMATION
  Report Type: Spontaneous
  Country: FR (occurrence: FR)
  Receive Date: 20130509
  Receipt Date: 20130820
  Transmission Date: 20140515
  Serious: Yes (Congenital Anomaly)
  Sender: FDA-Public Use
  Company Number: FR-TEVA-402839ISR

PATIENT
  Sex: 0

DRUGS (1)
  1. ANTADYS [Suspect]
     Dosage: SEVERAL TABLETS TAKEN BY THE MOTHER FOR ONE WEEK
     Route: 064
     Dates: start: 201211, end: 201211

REACTIONS (3)
  - Congenital central nervous system anomaly [Recovered/Resolved]
  - Cerebellar haemorrhage [Unknown]
  - Pyelocaliectasis [Not Recovered/Not Resolved]
